FAERS Safety Report 4360686-7 (Version None)
Quarter: 2004Q2

REPORT INFORMATION
  Report Type: 
  Country: None (occurrence: None)
  Receive Date: 20040514
  Receipt Date: 20040428
  Transmission Date: 20050107
  Serious: Yes (Other)
  Sender: FDA-Public Use
  Company Number: 195786

PATIENT
  Age: 45 Year
  Sex: Female
  Weight: 77.1115 kg

DRUGS (1)
  1. AVONEX ^BIOGEN^ [Suspect]
     Indication: MULTIPLE SCLEROSIS
     Dosage: 30 MCG QW IM
     Route: 030
     Dates: start: 20040101

REACTIONS (2)
  - BLOOD GLUCOSE DECREASED [None]
  - DISORIENTATION [None]
